FAERS Safety Report 12749141 (Version 1)
Quarter: 2016Q3

REPORT INFORMATION
  Report Type: Spontaneous
  Country: SE (occurrence: SE)
  Receive Date: 20160915
  Receipt Date: 20160915
  Transmission Date: 20161109
  Serious: Yes (Hospitalization, Other)
  Sender: FDA-Public Use
  Company Number: SE-ELI_LILLY_AND_COMPANY-SE201609003143

PATIENT
  Age: 64 Year
  Sex: Male

DRUGS (1)
  1. ZYPADHERA [Suspect]
     Active Substance: OLANZAPINE PAMOATE
     Indication: BIPOLAR DISORDER
     Dosage: 210 MG, 2/M
     Route: 030
     Dates: start: 2015

REACTIONS (8)
  - Dysarthria [Unknown]
  - Somnolence [Unknown]
  - Pneumonia [Unknown]
  - Muscular weakness [Unknown]
  - Myoglobin blood increased [Unknown]
  - Balance disorder [Unknown]
  - Fatigue [Unknown]
  - Pyrexia [Unknown]

NARRATIVE: CASE EVENT DATE: 20160825
